FAERS Safety Report 21697759 (Version 1)
Quarter: 2022Q4

REPORT INFORMATION
  Report Type: Spontaneous
  Country: JP (occurrence: JP)
  Receive Date: 20221208
  Receipt Date: 20221208
  Transmission Date: 20230113
  Serious: Yes (Other)
  Sender: FDA-Public Use
  Company Number: JP-BAYER-2022A141930

PATIENT
  Age: 68 Year
  Sex: Male

DRUGS (4)
  1. EYLEA [Suspect]
     Active Substance: AFLIBERCEPT
     Indication: Age-related macular degeneration
     Dosage: BOTH EYES; SOLUTION FOR INJECTION IN PRE-FILLED SYRINGE; STRENGTH: 40 MG/ML
     Dates: start: 20210715, end: 20210715
  2. EYLEA [Suspect]
     Active Substance: AFLIBERCEPT
     Dosage: BOTH EYES; SOLUTION FOR INJECTION IN PRE-FILLED SYRINGE; STRENGTH: 40 MG/ML
  3. EYLEA [Suspect]
     Active Substance: AFLIBERCEPT
     Dosage: BOTH EYES; SOLUTION FOR INJECTION IN PRE-FILLED SYRINGE; STRENGTH: 40 MG/ML
  4. EYLEA [Suspect]
     Active Substance: AFLIBERCEPT
     Dosage: BOTH EYES; SOLUTION FOR INJECTION IN PRE-FILLED SYRINGE; STRENGTH: 40 MG/ML
     Dates: start: 20220106, end: 20220106

REACTIONS (3)
  - Visual acuity reduced [Recovered/Resolved]
  - Uveitis [Recovered/Resolved]
  - Vision blurred [Recovered/Resolved]

NARRATIVE: CASE EVENT DATE: 20220107
